FAERS Safety Report 4727442-9 (Version None)
Quarter: 2005Q3

REPORT INFORMATION
  Report Type: 
  Country: None (occurrence: None)
  Receive Date: 20050727
  Receipt Date: 20050727
  Transmission Date: 20060218
  Serious: Yes (Hospitalization)
  Sender: FDA-Public Use
  Company Number: None

PATIENT
  Age: 40 Year
  Sex: Male
  Weight: 99.7 kg

DRUGS (17)
  1. WARFARIN SODIUM [Suspect]
     Indication: DEEP VEIN THROMBOSIS
     Dosage: 12 MG PO DAILY. 10G
     Route: 048
     Dates: start: 20050117, end: 20050119
  2. WARFARIN SODIUM [Suspect]
     Indication: PULMONARY EMBOLISM
     Dosage: 12 MG PO DAILY. 10G
     Route: 048
     Dates: start: 20050117, end: 20050119
  3. WARFARIN SODIUM [Suspect]
     Indication: DEEP VEIN THROMBOSIS
     Dosage: 12 MG PO DAILY. 10G
     Route: 048
     Dates: start: 20050120
  4. WARFARIN SODIUM [Suspect]
     Indication: PULMONARY EMBOLISM
     Dosage: 12 MG PO DAILY. 10G
     Route: 048
     Dates: start: 20050120
  5. FLUCONAZOLE [Suspect]
     Indication: ANTI-INFECTIVE THERAPY
     Dosage: 100 MG PO DAILY
     Route: 048
  6. PREDNISONE [Concomitant]
  7. METHOTREXATE [Concomitant]
  8. ACIPHEN [Concomitant]
  9. FOSAMAX [Concomitant]
  10. ATENOLOL [Concomitant]
  11. CALCIUM GLUCONATE [Concomitant]
  12. VIT D [Concomitant]
  13. COLACE [Concomitant]
  14. PRAVADROL [Concomitant]
  15. XOPENEX [Concomitant]
  16. ZELNORM [Concomitant]
  17. SEREVENT [Concomitant]

REACTIONS (4)
  - INTERNATIONAL NORMALISED RATIO INCREASED [None]
  - LIVER DISORDER [None]
  - SARCOIDOSIS [None]
  - VITAMIN K DEFICIENCY [None]
